FAERS Safety Report 9034013 (Version 1)
Quarter: 2013Q1

REPORT INFORMATION
  Report Type: Spontaneous
  Country: US (occurrence: US)
  Receive Date: 20130128
  Receipt Date: 20130128
  Transmission Date: 20140127
  Serious: Yes (Other)
  Sender: FDA-Public Use
  Company Number: US-AMGEN-USASP2012063238

PATIENT
  Age: 46 Year
  Sex: Female
  Weight: 83 kg

DRUGS (6)
  1. ENBREL [Suspect]
     Indication: PSORIASIS
     Dosage: 50 MG, 2 TIMES/WK
     Route: 058
  2. METOPROLOL [Concomitant]
     Dosage: 100 MG, UNK
  3. FUROSEMIDE [Concomitant]
     Dosage: 20 MG, UNK
  4. VITAMIN B-12 [Concomitant]
     Dosage: 1000 UNK, UNK
  5. SIMVASTATIN [Concomitant]
     Dosage: 5 MG, UNK
  6. PANTOPRAZOLE [Concomitant]
     Dosage: 20 MG, UNK

REACTIONS (2)
  - Splenomegaly [Unknown]
  - Tenderness [Unknown]
